FAERS Safety Report 6539310-0 (Version None)
Quarter: 2010Q1

REPORT INFORMATION
  Report Type: 
  Country: None (occurrence: None)
  Receive Date: 20100115
  Receipt Date: 20100108
  Transmission Date: 20100710
  Serious: Yes (Hospitalization)
  Sender: FDA-Public Use
  Company Number: FR-JNJFOC-20091100143

PATIENT
  Age: 40 Year
  Sex: Male
  Weight: 87 kg

DRUGS (6)
  1. CONCERTA [Suspect]
     Indication: PSYCHOTIC DISORDER
     Route: 048
  2. CONCERTA [Suspect]
     Route: 048
  3. CONCERTA [Suspect]
     Route: 048
  4. ZYPREXA [Concomitant]
     Indication: SCHIZOPHRENIA
  5. CLOZAPINE [Concomitant]
     Indication: SCHIZOPHRENIA
  6. CLONAZEPAM [Concomitant]
     Indication: SCHIZOPHRENIA
     Route: 065

REACTIONS (6)
  - ACCIDENTAL OVERDOSE [None]
  - AGITATION [None]
  - MIOSIS [None]
  - OFF LABEL USE [None]
  - OVERDOSE [None]
  - TACHYCARDIA [None]
